FAERS Safety Report 22526246 (Version 1)
Quarter: 2023Q2

REPORT INFORMATION
  Report Type: Spontaneous
  Country: KR (occurrence: KR)
  Receive Date: 20230606
  Receipt Date: 20230606
  Transmission Date: 20230722
  Serious: Yes (Death, Other)
  Sender: FDA-Public Use
  Company Number: KR-ORGANON-O2306KOR000220

PATIENT
  Age: 63 Year
  Sex: Female
  Weight: 69.2 kg

DRUGS (3)
  1. HYDROCHLOROTHIAZIDE\LOSARTAN POTASSIUM [Suspect]
     Active Substance: HYDROCHLOROTHIAZIDE\LOSARTAN POTASSIUM
     Indication: Essential hypertension
     Dosage: 1 FORMULATION, QD
     Route: 048
     Dates: start: 20190711, end: 20190721
  2. ROSUVASTATIN CALCIUM [Concomitant]
     Active Substance: ROSUVASTATIN CALCIUM
     Indication: Essential hypertension
     Dosage: 1 FORMULATION, QD;
     Route: 048
     Dates: start: 20190711, end: 20190722
  3. ACETAMINOPHEN [Concomitant]
     Active Substance: ACETAMINOPHEN
     Indication: Myeloid leukaemia
     Dosage: 1 FORMULATION, QD (FORMULATION REPORTED AS SUSTAINED-RELEASE FILM-COATED TABLETS)
     Route: 048
     Dates: start: 20190711, end: 20190722

REACTIONS (3)
  - Aspartate aminotransferase increased [Recovered/Resolved]
  - Alanine aminotransferase increased [Recovered/Resolved]
  - Septic shock [Fatal]

NARRATIVE: CASE EVENT DATE: 20190715
